FAERS Safety Report 5826006-3 (Version None)
Quarter: 2008Q2

REPORT INFORMATION
  Report Type: 
  Country: None (occurrence: None)
  Receive Date: 20080601
  Receipt Date: 20080214
  Transmission Date: 20081010
  Serious: No
  Sender: FDA-Public Use
  Company Number: US200802003507

PATIENT
  Age: 59 Year
  Sex: Female
  Weight: 74.4 kg

DRUGS (4)
  1. BYETTA [Suspect]
     Indication: INSULIN-REQUIRING TYPE 2 DIABETES MELLITUS
     Dosage: 5 UG, 2/D, SUBCUTANEOUS
     Route: 058
     Dates: start: 20070401
  2. METFORMIN HCL [Concomitant]
  3. GLIPIZIDE [Concomitant]
  4. LANTUS [Concomitant]

REACTIONS (2)
  - BLOOD GLUCOSE INCREASED [None]
  - WEIGHT DECREASED [None]
